FAERS Safety Report 24210301 (Version 4)
Quarter: 2025Q1

REPORT INFORMATION
  Report Type: Spontaneous
  Country: US (occurrence: US)
  Receive Date: 20240814
  Receipt Date: 20250220
  Transmission Date: 20250409
  Serious: No
  Sender: PFIZER
  Company Number: US-PFIZER INC-202400236128

PATIENT
  Age: 64 Year
  Sex: Female

DRUGS (2)
  1. LITFULO [Suspect]
     Active Substance: RITLECITINIB TOSYLATE
     Indication: Alopecia
  2. NUTRAFOL [Concomitant]
     Indication: Hair disorder

REACTIONS (2)
  - Therapeutic product effect delayed [Unknown]
  - Therapeutic product effect incomplete [Unknown]
